FAERS Safety Report 23983974 (Version 2)
Quarter: 2024Q3

REPORT INFORMATION
  Report Type: Spontaneous
  Country: US (occurrence: US)
  Receive Date: 20240618
  Receipt Date: 20240705
  Transmission Date: 20241017
  Serious: Yes (Hospitalization)
  Sender: CSL BEHRING
  Company Number: US-BEH-2024173738

PATIENT
  Age: 6 Year
  Sex: Male

DRUGS (4)
  1. HUMATE-P [Suspect]
     Active Substance: HUMAN COAGULATION FACTOR VIII/VON WILLEBRAND FACTOR COMPLEX
     Indication: Coagulopathy
     Dosage: 1000 IU, PRN
     Route: 042
     Dates: start: 20200122
  2. HUMATE-P [Suspect]
     Active Substance: HUMAN COAGULATION FACTOR VIII/VON WILLEBRAND FACTOR COMPLEX
     Indication: Haemorrhage
     Dosage: 1000 IU, SINGLE
     Route: 042
     Dates: start: 20240518, end: 20240518
  3. HUMATE-P [Suspect]
     Active Substance: HUMAN COAGULATION FACTOR VIII/VON WILLEBRAND FACTOR COMPLEX
     Dosage: 1000 UNK
     Route: 042
     Dates: start: 20240529, end: 20240529
  4. AMICAR [Concomitant]
     Active Substance: AMINOCAPROIC ACID
     Dosage: EVERY 6 HOURS
     Route: 048

REACTIONS (3)
  - Head injury [Unknown]
  - Traumatic haematoma [Unknown]
  - Head injury [Unknown]

NARRATIVE: CASE EVENT DATE: 20240101
